FAERS Safety Report 9463954 (Version 1)
Quarter: 2013Q3

REPORT INFORMATION
  Report Type: Spontaneous
  Country: US (occurrence: US)
  Receive Date: 20130819
  Receipt Date: 20130819
  Transmission Date: 20140515
  Serious: No
  Sender: FDA-Public Use
  Company Number: US-BRISTOL-MYERS SQUIBB COMPANY-16702607

PATIENT
  Age: 45 Year
  Sex: Male

DRUGS (1)
  1. REYATAZ CAPS 300 MG [Suspect]
     Route: 048

REACTIONS (1)
  - Diarrhoea [Unknown]
